FAERS Safety Report 25425942 (Version 3)
Quarter: 2025Q3

REPORT INFORMATION
  Report Type: Spontaneous
  Country: US (occurrence: US)
  Receive Date: 20250612
  Receipt Date: 20250815
  Transmission Date: 20251020
  Serious: No
  Sender: MALLINCKRODT
  Company Number: US-MALLINCKRODT-MNK202503520

PATIENT
  Age: 53 Year
  Sex: Female

DRUGS (3)
  1. CORTICOTROPIN [Suspect]
     Active Substance: CORTICOTROPIN
     Indication: Nephrotic syndrome
     Dosage: 40 UNITS
     Route: 058
     Dates: start: 202505
  2. CORTICOTROPIN [Suspect]
     Active Substance: CORTICOTROPIN
     Indication: Nephrotic syndrome
     Dates: start: 20250114
  3. TACROLIMUS [Concomitant]
     Active Substance: TACROLIMUS

REACTIONS (14)
  - Amnesia [Not Recovered/Not Resolved]
  - Thinking abnormal [Unknown]
  - Neck pain [Recovered/Resolved]
  - Migraine [Recovered/Resolved]
  - Exostosis [Unknown]
  - Blood pressure abnormal [Unknown]
  - Nerve compression [Unknown]
  - Dizziness [Unknown]
  - Heart rate increased [Unknown]
  - Arthralgia [Recovered/Resolved]
  - Pain in extremity [Recovered/Resolved]
  - Weight increased [Unknown]
  - Abdominal distension [Recovering/Resolving]
  - Fatigue [Recovering/Resolving]

NARRATIVE: CASE EVENT DATE: 20250101
